FAERS Safety Report 17514683 (Version 1)
Quarter: 2020Q1

REPORT INFORMATION
  Report Type: Report from Study
  Country: CL (occurrence: CL)
  Receive Date: 20200309
  Receipt Date: 20200309
  Transmission Date: 20200409
  Serious: Yes (Other)
  Sender: FDA-Public Use
  Company Number: CL-ROCHE-2558143

PATIENT

DRUGS (2)
  1. TRASTUZUMAB. [Suspect]
     Active Substance: TRASTUZUMAB
     Indication: HER-2 POSITIVE BREAST CANCER
     Route: 041
  2. TRASTUZUMAB. [Suspect]
     Active Substance: TRASTUZUMAB
     Indication: HER-2 POSITIVE BREAST CANCER
     Route: 058

REACTIONS (8)
  - Febrile neutropenia [Unknown]
  - Pulmonary embolism [Unknown]
  - Pneumonia [Unknown]
  - Tonsillitis [Unknown]
  - Cellulitis [Unknown]
  - Neutropenia [Unknown]
  - Pleural effusion [Unknown]
  - Left ventricular dysfunction [Unknown]
